FAERS Safety Report 6277856-3 (Version None)
Quarter: 2009Q3

REPORT INFORMATION
  Report Type: 
  Country: None (occurrence: None)
  Receive Date: 20090717
  Receipt Date: 20090717
  Transmission Date: 20100115
  Serious: Yes (Other)
  Sender: FDA-Public Use
  Company Number: None

PATIENT
  Sex: Female
  Weight: 72.5755 kg

DRUGS (1)
  1. SYMBICORT [Suspect]
     Indication: ASTHMA
     Dosage: 1 PUFF 2 X'S/DAY INHAL
     Route: 055
     Dates: start: 20090101, end: 20090716

REACTIONS (3)
  - ASTHMA [None]
  - CANDIDIASIS [None]
  - CONDITION AGGRAVATED [None]
